FAERS Safety Report 5797092-4 (Version None)
Quarter: 2008Q3

REPORT INFORMATION
  Report Type: 
  Country: None (occurrence: None)
  Receive Date: 20080701
  Receipt Date: 20080627
  Transmission Date: 20090109
  Serious: Yes (Hospitalization)
  Sender: FDA-Public Use
  Company Number: GB-WATSON-2008-03892

PATIENT
  Age: 6 Year
  Sex: Male

DRUGS (1)
  1. PREDNISOLONE (WATSON LABORATORIES) [Suspect]
     Indication: DUCHENNE MUSCULAR DYSTROPHY
     Dosage: 15 MG, DAILY (0.75 MG/KG)

REACTIONS (1)
  - MYOGLOBINURIA [None]
